FAERS Safety Report 9378600 (Version 1)
Quarter: 2013Q3

REPORT INFORMATION
  Report Type: Report from Study
  Country: CN (occurrence: CN)
  Receive Date: 20130702
  Receipt Date: 20130702
  Transmission Date: 20140515
  Serious: Yes (Other)
  Sender: FDA-Public Use
  Company Number: CN-ROCHE-1242729

PATIENT
  Sex: Female
  Weight: 65 kg

DRUGS (7)
  1. CELLCEPT [Suspect]
     Indication: RENAL TRANSPLANT
     Dosage: 1.5G PER DAY
     Route: 048
     Dates: start: 20040910
  2. CELLCEPT [Suspect]
     Dosage: 1.25G PER DAY
     Route: 048
  3. CELLCEPT [Suspect]
     Dosage: 1.0G PER DAY
     Route: 048
  4. TACROLIMUS [Concomitant]
     Indication: RENAL TRANSPLANT
     Dosage: 6MG PER DAY
     Route: 048
     Dates: start: 20040910
  5. TACROLIMUS [Concomitant]
     Dosage: 1MG IN THE MORNING AND 0.75MG IN THE EVENING
     Route: 048
  6. TACROLIMUS [Concomitant]
     Dosage: 1.5MG PER DAY
     Route: 048
  7. HERBESSER [Concomitant]

REACTIONS (7)
  - Haematuria [Not Recovered/Not Resolved]
  - Proteinuria [Not Recovered/Not Resolved]
  - Abdominal pain [Recovered/Resolved]
  - Diarrhoea [Recovered/Resolved]
  - Thyroid neoplasm [Not Recovered/Not Resolved]
  - Immunosuppressant drug level decreased [Recovering/Resolving]
  - Haemorrhagic cyst [Recovered/Resolved]
